FAERS Safety Report 9950835 (Version 1)
Quarter: 2014Q1

REPORT INFORMATION
  Report Type: Report from Study
  Country: US (occurrence: US)
  Receive Date: 20140304
  Receipt Date: 20140304
  Transmission Date: 20141002
  Serious: No
  Sender: FDA-Public Use
  Company Number: US-ABBVIE-13P-163-1068236-00

PATIENT
  Age: 27 Year
  Sex: Female

DRUGS (14)
  1. HUMIRA [Suspect]
     Indication: COLITIS ULCERATIVE
     Dates: start: 20130226
  2. HUMIRA [Suspect]
     Dates: start: 20130312
  3. ASACOL [Concomitant]
     Indication: PRODUCT USED FOR UNKNOWN INDICATION
  4. PRILOSEC [Concomitant]
     Indication: PRODUCT USED FOR UNKNOWN INDICATION
  5. LOESTRIN [Concomitant]
     Indication: CONTRACEPTION
  6. CELEXA [Concomitant]
     Indication: DEPRESSION
     Dates: start: 20130315
  7. CELEXA [Concomitant]
     Indication: ANXIETY
  8. CELEXA [Concomitant]
     Indication: INSOMNIA
  9. SEROQUEL [Concomitant]
     Indication: DEPRESSION
  10. SEROQUEL [Concomitant]
     Indication: ANXIETY
  11. SEROQUEL [Concomitant]
     Indication: INSOMNIA
  12. ATIVAN [Concomitant]
     Indication: DEPRESSION
     Dates: start: 20130315
  13. ATIVAN [Concomitant]
     Indication: ANXIETY
  14. ATIVAN [Concomitant]
     Indication: INSOMNIA

REACTIONS (7)
  - Diarrhoea [Not Recovered/Not Resolved]
  - Device malfunction [Unknown]
  - Wrong drug administered [Unknown]
  - Nausea [Not Recovered/Not Resolved]
  - Abdominal pain [Not Recovered/Not Resolved]
  - Back pain [Not Recovered/Not Resolved]
  - Pyrexia [Not Recovered/Not Resolved]
